FAERS Safety Report 6224174-5 (Version None)
Quarter: 2009Q2

REPORT INFORMATION
  Report Type: 
  Country: None (occurrence: None)
  Receive Date: 20090612
  Receipt Date: 20090311
  Transmission Date: 20091009
  Serious: Yes (Hospitalization, Other)
  Sender: FDA-Public Use
  Company Number: US-ABBOTT-09P-163-0561847-00

PATIENT
  Sex: Female
  Weight: 45.4 kg

DRUGS (4)
  1. HUMIRA [Suspect]
     Indication: RHEUMATOID ARTHRITIS
     Dates: start: 20051201, end: 20080501
  2. HUMIRA [Suspect]
     Dates: start: 20080501, end: 20081201
  3. HUMIRA [Suspect]
     Dates: start: 20090114, end: 20090201
  4. HUMIRA [Suspect]
     Dates: start: 20090303

REACTIONS (8)
  - ARTHRALGIA [None]
  - BRONCHITIS [None]
  - COUGH [None]
  - JOINT SWELLING [None]
  - PNEUMONIA [None]
  - RED BLOOD CELL SEDIMENTATION RATE INCREASED [None]
  - RHINORRHOEA [None]
  - WHEEZING [None]
